FAERS Safety Report 21325525 (Version 4)
Quarter: 2023Q2

REPORT INFORMATION
  Report Type: Report from Study
  Country: KW (occurrence: KW)
  Receive Date: 20220912
  Receipt Date: 20230414
  Transmission Date: 20230722
  Serious: Yes (Other)
  Sender: FDA-Public Use
  Company Number: KW-TAKEDA-2022TUS062770

PATIENT
  Age: 19 Year
  Sex: Female

DRUGS (7)
  1. LANADELUMAB [Suspect]
     Active Substance: LANADELUMAB
     Indication: Hereditary angioedema
     Dosage: 300 MILLIGRAM, Q2WEEKS
     Route: 065
     Dates: start: 20211122
  2. LANADELUMAB [Suspect]
     Active Substance: LANADELUMAB
     Dosage: 300 MILLIGRAM, Q4WEEKS
     Route: 065
     Dates: start: 20220801
  3. LEVOFLOXACIN [Concomitant]
     Active Substance: LEVOFLOXACIN
     Indication: Bacterial infection
     Dosage: 500 MILLIGRAM
     Route: 048
     Dates: start: 20211201, end: 20211205
  4. LEVOFLOXACIN [Concomitant]
     Active Substance: LEVOFLOXACIN
     Indication: Pyrexia
  5. PREDNISOLONE [Concomitant]
     Active Substance: PREDNISOLONE
     Indication: Pyrexia
     Dosage: 20 MILLIGRAM
     Route: 048
     Dates: start: 20211201, end: 20211203
  6. PREDNISOLONE [Concomitant]
     Active Substance: PREDNISOLONE
     Indication: Respiratory distress
     Dosage: 125 MILLIGRAM
     Route: 042
     Dates: start: 20220901, end: 20220901
  7. COLFORSIN [Concomitant]
     Active Substance: COLFORSIN
     Indication: Nutritional supplementation
     Dosage: 500 MILLIGRAM
     Route: 048
     Dates: start: 20220825, end: 20220901

REACTIONS (2)
  - Respiratory distress [Recovered/Resolved]
  - Influenza [Recovered/Resolved]

NARRATIVE: CASE EVENT DATE: 20220901
